FAERS Safety Report 23804225 (Version 1)
Quarter: 2024Q2

REPORT INFORMATION
  Report Type: Spontaneous
  Country: US (occurrence: None)
  Receive Date: 20240430
  Receipt Date: 20240430
  Transmission Date: 20240716
  Serious: Yes (Hospitalization)
  Sender: FDA-Public Use
  Company Number: None

PATIENT
  Age: 79 Year
  Sex: Male
  Weight: 85 kg

DRUGS (2)
  1. SUCCINYLCHOLINE CHLORIDE [Suspect]
     Active Substance: SUCCINYLCHOLINE CHLORIDE
     Indication: Chronic obstructive pulmonary disease
     Dates: start: 20230206, end: 20230206
  2. SUCCINYLCHOLINE CHLORIDE [Suspect]
     Active Substance: SUCCINYLCHOLINE CHLORIDE
     Indication: Pneumonia

REACTIONS (4)
  - Neuromuscular block prolonged [None]
  - Sedation [None]
  - Chronic obstructive pulmonary disease [None]
  - Pseudocholinesterase deficiency [None]

NARRATIVE: CASE EVENT DATE: 20230206
